FAERS Safety Report 7010819-9 (Version None)
Quarter: 2010Q3

REPORT INFORMATION
  Report Type: 
  Country: None (occurrence: None)
  Receive Date: 20100923
  Receipt Date: 20100923
  Transmission Date: 20110219
  Serious: Yes (Other)
  Sender: FDA-Public Use
  Company Number: None

PATIENT
  Age: 35 Year
  Sex: Female
  Weight: 112.4921 kg

DRUGS (2)
  1. LAMOTRIGINE [Suspect]
     Indication: BIPOLAR II DISORDER
     Dosage: 25MG ONCE DAILY PO
     Route: 048
     Dates: start: 20100914, end: 20100920
  2. LAMOTRIGINE [Suspect]

REACTIONS (2)
  - BURNING SENSATION [None]
  - PRURITUS GENERALISED [None]
